FAERS Safety Report 20609662 (Version 1)
Quarter: 2022Q1

REPORT INFORMATION
  Report Type: Spontaneous
  Country: NL (occurrence: NL)
  Receive Date: 20220318
  Receipt Date: 20220318
  Transmission Date: 20220423
  Serious: Yes (Hospitalization)
  Sender: FDA-Public Use
  Company Number: None

PATIENT
  Age: 81 Year
  Sex: Female
  Weight: 69 kg

DRUGS (10)
  1. CLINDAMYCIN [Suspect]
     Active Substance: CLINDAMYCIN
     Indication: Dental implantation
     Dosage: 3DD 2 PIECES, BRAND NAME NOT SPECIFIED, 600 MG
     Route: 065
     Dates: start: 20220121, end: 20220128
  2. CLINDAMYCIN [Suspect]
     Active Substance: CLINDAMYCIN
     Indication: Prophylaxis
  3. AZATHIOPRINE [Concomitant]
     Active Substance: AZATHIOPRINE
     Dosage: 25 MG,BRAND NAME NOT SPECIFIED,THERAPY START DATE AND END DATE: ASKU
  4. ZOPICLONE [Concomitant]
     Active Substance: ZOPICLONE
     Dosage: 7.5 MG, BRAND NAME NOT SPECIFIED,THERAPY START DATE AND END DATE: ASKU
  5. CALCIUMCARB/COLECAL [Concomitant]
     Dosage: 1.25 G (GRAMS)/440 UNITS,SACHET,CALCIUM CARB/COLECAL ELECTRONIC 1.25G/440IE (500MG CA) / CAD LEMON S
  6. CICLESONIDE [Concomitant]
     Active Substance: CICLESONIDE
     Dosage: AEROSOL, 160 MICROGRAMS PER DOSE, BRAND NAME NOT SPECIFIED,THERAPY START DATE AND END DATE: ASKU
  7. MOVICOLON [Concomitant]
     Active Substance: POLYETHYLENE GLYCOL 3350\POTASSIUM CHLORIDE\SODIUM BICARBONATE\SODIUM CHLORIDE
     Dosage: MACROGOL/SALTS PDR V BEVERAGE (MOVIC/MOLAX/LAXT/GEN) / MOVICOLON POWDER FOR BEVERAGE IN SACHET,THERA
  8. AMITRIPTYLINE [Concomitant]
     Active Substance: AMITRIPTYLINE
     Dosage: 25 MG,BRAND NAME NOT SPECIFIED,THERAPY START DATE AND END DATE: ASKU
  9. PANTOPRAZOLE SODIUM [Concomitant]
     Active Substance: PANTOPRAZOLE SODIUM
     Dosage: 20 MG,THERAPY START DATE AND END DATE: ASKU,BRAND NAME NOT SPECIFIED
  10. SOLIFENACIN [Concomitant]
     Active Substance: SOLIFENACIN
     Dosage: 10 MG, THERAPY START DATE AND END DATE: ASKU,BRAND NAME NOT SPECIFIED

REACTIONS (6)
  - Confusional state [Recovered/Resolved]
  - Pyrexia [Recovered/Resolved]
  - Face oedema [Recovered/Resolved]
  - Drug reaction with eosinophilia and systemic symptoms [Recovered/Resolved]
  - Rash [Recovered/Resolved]
  - Pruritus [Recovered/Resolved]

NARRATIVE: CASE EVENT DATE: 20220128
